FAERS Safety Report 12498053 (Version 1)
Quarter: 2016Q2

REPORT INFORMATION
  Report Type: Spontaneous
  Country: GB (occurrence: GB)
  Receive Date: 20160626
  Receipt Date: 20160626
  Transmission Date: 20160815
  Serious: Yes (Death, Hospitalization)
  Sender: FDA-Public Use
  Company Number: GB-UNICHEM LABORATORIES LIMITED-UCM201606-000130

PATIENT
  Age: 19 Month
  Sex: Male

DRUGS (2)
  1. METRONIDAZOLE. [Suspect]
     Active Substance: METRONIDAZOLE
     Route: 042
  2. METRONIDAZOLE. [Suspect]
     Active Substance: METRONIDAZOLE
     Route: 042

REACTIONS (6)
  - Acute hepatic failure [Unknown]
  - Shock [Unknown]
  - Toxicity to various agents [Unknown]
  - Hepatic necrosis [Fatal]
  - Steatorrhoea [Unknown]
  - Coagulopathy [Unknown]
